FAERS Safety Report 25181018 (Version 1)
Quarter: 2025Q2

REPORT INFORMATION
  Report Type: Spontaneous
  Country: GB (occurrence: GB)
  Receive Date: 20250409
  Receipt Date: 20250409
  Transmission Date: 20250716
  Serious: Yes (Other)
  Sender: GLAXOSMITHKLINE
  Company Number: None

PATIENT

DRUGS (5)
  1. BUPROPION [Suspect]
     Active Substance: BUPROPION
     Indication: Depression
     Dosage: 150 MG, BID (150MG MR TWICE DAILY)
     Route: 065
  2. AMITRIPTYLINE [Concomitant]
     Active Substance: AMITRIPTYLINE
     Indication: Depression
     Route: 065
  3. LAMOTRIGINE [Concomitant]
     Active Substance: LAMOTRIGINE
     Indication: Affective disorder
     Route: 065
  4. PROPRANOLOL [Concomitant]
     Active Substance: PROPRANOLOL HYDROCHLORIDE
     Indication: Anxiety
     Route: 065
  5. METHYLPHENIDATE [Concomitant]
     Active Substance: METHYLPHENIDATE
     Indication: Attention deficit hyperactivity disorder
     Route: 065

REACTIONS (10)
  - Hallucination, visual [Recovered/Resolved]
  - Vision blurred [Recovered/Resolved]
  - Myoclonus [Recovered/Resolved]
  - Dry mouth [Recovered/Resolved]
  - Diarrhoea [Recovered/Resolved]
  - Agitation [Recovered/Resolved]
  - Taste disorder [Recovered/Resolved]
  - Saliva altered [Recovered/Resolved]
  - Seizure [Recovered/Resolved]
  - Constipation [Recovered/Resolved]
